FAERS Safety Report 9608277 (Version 1)
Quarter: 2013Q4

REPORT INFORMATION
  Report Type: Spontaneous
  Country: US (occurrence: US)
  Receive Date: 20131009
  Receipt Date: 20131009
  Transmission Date: 20140711
  Serious: No
  Sender: FDA-Public Use
  Company Number: US-PFIZER INC-2013285118

PATIENT
  Sex: Male

DRUGS (2)
  1. ADVIL PM [Suspect]
     Dosage: UNK
  2. ADVIL PM [Suspect]
     Dosage: TWO TABLETS, UNK
     Dates: start: 20131001

REACTIONS (4)
  - Feeling jittery [Unknown]
  - Malaise [Unknown]
  - Dizziness [Unknown]
  - Insomnia [Unknown]
